FAERS Safety Report 11053661 (Version 6)
Quarter: 2021Q2

REPORT INFORMATION
  Report Type: Spontaneous
  Country: US (occurrence: US)
  Receive Date: 20150421
  Receipt Date: 20210527
  Transmission Date: 20210716
  Serious: Yes (Other)
  Sender: FDA-Public Use
  Company Number: US-JNJFOC-20150322341

PATIENT
  Age: 8 Year
  Sex: Male

DRUGS (3)
  1. RISPERDAL [Suspect]
     Active Substance: RISPERIDONE
     Route: 048
     Dates: end: 2003
  2. RISPERDAL [Suspect]
     Active Substance: RISPERIDONE
     Indication: ATTENTION DEFICIT HYPERACTIVITY DISORDER
     Dosage: IN VARYING DOSES OF 0.25 MG AND 0.5 MG
     Route: 048
     Dates: start: 20010226, end: 2001
  3. RISPERDAL [Suspect]
     Active Substance: RISPERIDONE
     Route: 048
     Dates: start: 20010401, end: 20020430

REACTIONS (5)
  - Gynaecomastia [Not Recovered/Not Resolved]
  - Obesity [Unknown]
  - Product use in unapproved indication [Unknown]
  - Off label use [Unknown]
  - Emotional disorder [Unknown]

NARRATIVE: CASE EVENT DATE: 20010226
